FAERS Safety Report 9957753 (Version 1)
Quarter: 2014Q1

REPORT INFORMATION
  Report Type: Report from Study
  Country: US (occurrence: US)
  Receive Date: 20140304
  Receipt Date: 20140304
  Transmission Date: 20141002
  Serious: No
  Sender: FDA-Public Use
  Company Number: US-ABBVIE-13P-163-1091760-00

PATIENT
  Age: 19 Year
  Sex: Male
  Weight: 72.64 kg

DRUGS (9)
  1. HUMIRA [Suspect]
     Indication: CROHN^S DISEASE
     Route: 058
     Dates: start: 201212, end: 201212
  2. HUMIRA [Suspect]
  3. HUMIRA [Suspect]
  4. FLORASTOR [Concomitant]
     Indication: CROHN^S DISEASE
  5. IRON [Concomitant]
     Indication: MINERAL SUPPLEMENTATION
  6. PENTASA [Concomitant]
     Indication: CROHN^S DISEASE
  7. PRILOSEC [Concomitant]
     Indication: CROHN^S DISEASE
  8. MULTIVITAMIN [Concomitant]
     Indication: VITAMIN SUPPLEMENTATION
  9. VITAMIN D [Concomitant]
     Indication: VITAMIN SUPPLEMENTATION

REACTIONS (2)
  - Anxiety [Not Recovered/Not Resolved]
  - Emotional disorder [Not Recovered/Not Resolved]
